FAERS Safety Report 9318566 (Version 2)
Quarter: 2013Q4

REPORT INFORMATION
  Report Type: Spontaneous
  Country: GB (occurrence: None)
  Receive Date: 20130523
  Receipt Date: 20131017
  Transmission Date: 20140711
  Serious: Yes (Other)
  Sender: FDA-Public Use
  Company Number: KAD201305-000561

PATIENT
  Age: 47 Year
  Sex: Male

DRUGS (3)
  1. RIBAVIRIN (RIBAVIRIN) [Suspect]
     Indication: HEPATITIS C
     Dosage: TWICE DAILY
     Route: 048
     Dates: start: 20120614
  2. PEGINTERFERON ALFA-2B [Suspect]
     Indication: HEPATITIS C
     Route: 058
     Dates: start: 20120614
  3. INCIVO (TELAPREVIR) [Suspect]
     Indication: HEPATITIS C
     Route: 048
     Dates: start: 20120614, end: 20120906

REACTIONS (6)
  - Confusional state [None]
  - Drug ineffective [None]
  - Fatigue [None]
  - Haemorrhoids [None]
  - Nausea [None]
  - Rash generalised [None]
